FAERS Safety Report 24084921 (Version 1)
Quarter: 2024Q3

REPORT INFORMATION
  Report Type: Spontaneous
  Country: FR (occurrence: None)
  Receive Date: 20240712
  Receipt Date: 20240712
  Transmission Date: 20241017
  Serious: Yes (Hospitalization)
  Sender: ASTRAZENECA
  Company Number: 2024A155785

PATIENT
  Age: 87 Year
  Sex: Female
  Weight: 56.6 kg

DRUGS (1)
  1. DAPAGLIFLOZIN [Suspect]
     Active Substance: DAPAGLIFLOZIN
     Indication: Diabetes mellitus
     Route: 048
     Dates: start: 20240301, end: 20240620

REACTIONS (4)
  - Anorectal discomfort [Recovered/Resolved]
  - Pelvic discomfort [Recovered/Resolved]
  - Vulvovaginitis [Recovered/Resolved]
  - Vulvovaginal mycotic infection [Recovered/Resolved]

NARRATIVE: CASE EVENT DATE: 20240610
